FAERS Safety Report 10265140 (Version 2)
Quarter: 2014Q3

REPORT INFORMATION
  Report Type: Spontaneous
  Country: US (occurrence: US)
  Receive Date: 20140627
  Receipt Date: 20140702
  Transmission Date: 20150326
  Serious: Yes (Other)
  Sender: FDA-Public Use
  Company Number: US-PFIZER INC-2014174706

PATIENT
  Age: 98 Year
  Sex: Female
  Weight: 49.43 kg

DRUGS (3)
  1. GABAPENTIN. [Suspect]
     Active Substance: GABAPENTIN
     Indication: CONVULSION
     Dosage: UNK
     Dates: end: 20140618
  2. NEURONTIN [Suspect]
     Active Substance: GABAPENTIN
     Indication: CONVULSION
     Dosage: UNK
     Dates: end: 20140618
  3. MECLOZINE HCL [Suspect]
     Active Substance: MECLOZINE DIHYDROCHLORIDE
     Dosage: UNK

REACTIONS (7)
  - Depression [Unknown]
  - Fracture [Unknown]
  - Somnolence [Unknown]
  - Weight decreased [Unknown]
  - Hallucination, visual [Unknown]
  - Convulsion [Unknown]
  - Fall [Unknown]

NARRATIVE: CASE EVENT DATE: 201406
